FAERS Safety Report 10553072 (Version 2)
Quarter: 2015Q1

REPORT INFORMATION
  Report Type: Report from Study
  Country: US (occurrence: US)
  Receive Date: 20141029
  Receipt Date: 20150127
  Transmission Date: 20150720
  Serious: Yes (Hospitalization)
  Sender: FDA-Public Use
  Company Number: US-BRISTOL-MYERS SQUIBB COMPANY-21540943

PATIENT
  Age: 55 Year
  Sex: Female

DRUGS (9)
  1. TRICOR [Concomitant]
     Active Substance: FENOFIBRATE
     Indication: HYPERTRIGLYCERIDAEMIA
     Dosage: 145 MG, QD
     Dates: start: 2005, end: 20141119
  2. OMEPRAZOL E [Concomitant]
     Active Substance: OMEPRAZOLE
     Indication: GASTROOESOPHAGEAL REFLUX DISEASE
     Dosage: 20 MG, UNK
     Dates: start: 2008, end: 20141115
  3. DITROPAN [Concomitant]
     Active Substance: OXYBUTYNIN CHLORIDE
     Indication: URINARY INCONTINENCE
     Dosage: 25 MG, TID
     Dates: start: 20140831, end: 20141114
  4. METRELEPTIN [Suspect]
     Active Substance: METRELEPTIN
     Indication: LIPODYSTROPHY ACQUIRED
  5. NEURONTIN [Concomitant]
     Active Substance: GABAPENTIN
     Indication: PAIN
     Dosage: 600 MG, QD
     Dates: start: 20140520
  6. METRELEPTIN [Suspect]
     Active Substance: METRELEPTIN
     Indication: DIABETES MELLITUS
     Dosage: 5 MG, BID
     Route: 058
     Dates: start: 20090724
  7. LEVOTHYROXINE [Concomitant]
     Active Substance: LEVOTHYROXINE
     Indication: HYPOTHYROIDISM
     Dosage: 75 ?G, QWK
     Dates: start: 20120609, end: 20141114
  8. ULTRAM [Concomitant]
     Active Substance: TRAMADOL HYDROCHLORIDE
     Indication: PAIN
     Dosage: 50 MG, BID
     Dates: start: 201311, end: 20141115
  9. METFORMIN [Concomitant]
     Active Substance: METFORMIN HYDROCHLORIDE
     Indication: DIABETES MELLITUS
     Dosage: 1000 MG, BID
     Dates: start: 20120620, end: 20141216

REACTIONS (2)
  - Urinary tract infection [Recovering/Resolving]
  - Mitochondrial encephalomyopathy [Recovering/Resolving]

NARRATIVE: CASE EVENT DATE: 20141021
